FAERS Safety Report 14563876 (Version 1)
Quarter: 2018Q1

REPORT INFORMATION
  Report Type: Spontaneous
  Country: GR (occurrence: GR)
  Receive Date: 20180222
  Receipt Date: 20180222
  Transmission Date: 20180509
  Serious: Yes (Other)
  Sender: FDA-Public Use
  Company Number: GR-BAUSCH-BL-2018-004722

PATIENT
  Age: 14 Year
  Sex: Female

DRUGS (2)
  1. SODIUM CHLORIDE. [Concomitant]
     Active Substance: SODIUM CHLORIDE
     Indication: PRODUCT USED FOR UNKNOWN INDICATION
     Dosage: (0.9 PERCENT) HOURLY INFUSION
     Route: 041
  2. ACICLOVIR [Suspect]
     Active Substance: ACYCLOVIR
     Indication: HERPES SIMPLEX MENINGOENCEPHALITIS
     Dosage: 30 MG/KG/24 H IN THREE DIVIDED DOSES, HOURLY IV INFUSIONS
     Route: 041

REACTIONS (5)
  - Skin necrosis [Recovered/Resolved with Sequelae]
  - Skin disorder [Recovered/Resolved with Sequelae]
  - Catheter site extravasation [Recovered/Resolved]
  - Burning sensation [Recovered/Resolved]
  - Inflammation [Recovered/Resolved]
